FAERS Safety Report 9850526 (Version 2)
Quarter: 2014Q1

REPORT INFORMATION
  Report Type: Spontaneous
  Country: US (occurrence: US)
  Receive Date: 20140128
  Receipt Date: 20140331
  Transmission Date: 20141002
  Serious: Yes (Other)
  Sender: FDA-Public Use
  Company Number: US-TEVA-458884USA

PATIENT
  Age: 36 Year
  Sex: Female
  Weight: 104.87 kg

DRUGS (3)
  1. PARAGARD 380A [Suspect]
     Indication: CONTRACEPTION
     Route: 015
     Dates: start: 20101103, end: 20140117
  2. COUMADIN [Concomitant]
     Indication: FACTOR V DEFICIENCY
  3. WELLBUTRIN [Concomitant]
     Indication: PRODUCT USED FOR UNKNOWN INDICATION

REACTIONS (4)
  - Device dislocation [Recovered/Resolved]
  - Metrorrhagia [Unknown]
  - Coital bleeding [Unknown]
  - Pain [Recovered/Resolved]
